FAERS Safety Report 10733087 (Version 1)
Quarter: 2015Q1

REPORT INFORMATION
  Report Type: Spontaneous
  Country: US (occurrence: None)
  Receive Date: 20150120
  Receipt Date: 20150120
  Transmission Date: 20150721
  Serious: Yes (Hospitalization, Other)
  Sender: FDA-Public Use
  Company Number: US2015001145

PATIENT
  Age: 42 Year
  Sex: Female
  Weight: 133.3 kg

DRUGS (4)
  1. AMLODIPINE [Concomitant]
     Active Substance: AMLODIPINE BESYLATE
  2. LOSARTAN AND HYDROCHLOROTHIAZIDE [Concomitant]
     Active Substance: HYDROCHLOROTHIAZIDE\LOSARTAN POTASSIUM
  3. ABACAVIRSULPHATE+DOLUTEGRAVIR+LAMIVUDINE (ABACAVIR SULPHATE, DOLUTEGRAVIR, LAMIVUDINE) TABLET [Suspect]
     Active Substance: ABACAVIR SULFATE\DOLUTEGRAVIR SODIUM\LAMIVUDINE
     Indication: HIV INFECTION
     Route: 048
     Dates: start: 20140805
  4. METOPROLOL [Concomitant]
     Active Substance: METOPROLOL

REACTIONS (4)
  - Chest pain [None]
  - Acute coronary syndrome [None]
  - Acute kidney injury [None]
  - Hypertensive emergency [None]

NARRATIVE: CASE EVENT DATE: 20141226
